FAERS Safety Report 6187929-1 (Version None)
Quarter: 2009Q2

REPORT INFORMATION
  Report Type: 
  Country: None (occurrence: None)
  Receive Date: 20090511
  Receipt Date: 20090511
  Transmission Date: 20091009
  Serious: Yes (Disabling, Congenital Anomaly)
  Sender: FDA-Public Use
  Company Number: None

PATIENT
  Age: 27 Year
  Sex: Female
  Weight: 63.5036 kg

DRUGS (2)
  1. PROMETHAZINE [Suspect]
     Indication: NAUSEA
     Dosage: 1/2 TO 1 TABLET EVERY 4 HOURS PO
     Route: 048
     Dates: start: 20080119, end: 20080330
  2. PROMETHAZINE [Suspect]
     Indication: VOMITING IN PREGNANCY
     Dosage: 1/2 TO 1 TABLET EVERY 4 HOURS PO
     Route: 048
     Dates: start: 20080119, end: 20080330

REACTIONS (1)
  - DRUG EXPOSURE DURING PREGNANCY [None]
